FAERS Safety Report 4775031-2 (Version None)
Quarter: 2005Q3

REPORT INFORMATION
  Report Type: 
  Country: None (occurrence: None)
  Receive Date: 20050920
  Receipt Date: 20050909
  Transmission Date: 20060218
  Serious: Yes (Other)
  Sender: FDA-Public Use
  Company Number: 2005126265

PATIENT
  Age: 16 Year
  Sex: Male

DRUGS (5)
  1. ZOLOFT [Suspect]
     Indication: DEPRESSION
     Dosage: 50 MG (50 MG, 1 IN 1 D), ORAL
     Route: 048
     Dates: start: 20050601, end: 20050906
  2. REMERON [Suspect]
     Indication: ILL-DEFINED DISORDER
     Dosage: 7.5 MG, ORAL
     Route: 048
     Dates: start: 20050601, end: 20050801
  3. ESTAZOLAM [Suspect]
     Indication: ILL-DEFINED DISORDER
  4. PROZAC [Concomitant]
  5. ALL OTHER THERAPEUTIC PRODUCTS (ALL OTHER THERAPEUTIC PRODUCTS) [Concomitant]

REACTIONS (3)
  - OVERDOSE [None]
  - SUICIDE ATTEMPT [None]
  - TETANY [None]
